FAERS Safety Report 6772784-9 (Version None)
Quarter: 2010Q2

REPORT INFORMATION
  Report Type: 
  Country: None (occurrence: None)
  Receive Date: 20100616
  Receipt Date: 20100603
  Transmission Date: 20101027
  Serious: Yes (Death, Hospitalization)
  Sender: FDA-Public Use
  Company Number: GT-ELI_LILLY_AND_COMPANY-GT201006001835

PATIENT
  Age: 72 Year
  Sex: Female

DRUGS (3)
  1. OLANZAPINE [Suspect]
     Indication: AGITATED DEPRESSION
     Dosage: 5 MG, DAILY (1/D)
     Route: 048
     Dates: start: 20100505, end: 20100519
  2. CYMBALTA [Suspect]
     Indication: AGITATED DEPRESSION
     Dosage: 60 MG, DAILY (1/D)
     Route: 048
     Dates: start: 20100505, end: 20100519
  3. GLIMEPIRIDE [Concomitant]
     Dosage: UNK, UNKNOWN
     Route: 065

REACTIONS (5)
  - CARDIO-RESPIRATORY ARREST [None]
  - DECREASED APPETITE [None]
  - DEHYDRATION [None]
  - FEELING ABNORMAL [None]
  - HOSPITALISATION [None]
